FAERS Safety Report 6020051-3 (Version None)
Quarter: 2008Q4

REPORT INFORMATION
  Report Type: 
  Country: None (occurrence: None)
  Receive Date: 20081226
  Receipt Date: 20081125
  Transmission Date: 20090506
  Serious: No
  Sender: FDA-Public Use
  Company Number: US-BAYER-200839872NA

PATIENT
  Age: 25 Year
  Sex: Female

DRUGS (2)
  1. OCELLA [Suspect]
     Indication: CONTRACEPTION
     Route: 048
     Dates: start: 20080501, end: 20081119
  2. DEXAMETHASONE [Concomitant]
     Indication: OVARIAN DISORDER

REACTIONS (2)
  - ABDOMINAL PAIN [None]
  - POLLAKIURIA [None]
